FAERS Safety Report 7732260-3 (Version None)
Quarter: 2011Q3

REPORT INFORMATION
  Report Type: 
  Country: None (occurrence: None)
  Receive Date: 20110906
  Receipt Date: 20110823
  Transmission Date: 20111222
  Serious: No
  Sender: FDA-Public Use
  Company Number: US-AMGEN-USASP2011038507

PATIENT
  Sex: Female
  Weight: 55.782 kg

DRUGS (13)
  1. LEVOTHYROXINE SODIUM [Concomitant]
  2. HYDROXYCHLOROQUINE [Concomitant]
  3. VITAMIN C                          /00008001/ [Concomitant]
  4. SUMATRIPTAN SUCCINATE [Concomitant]
  5. VITAMIN E                          /00110501/ [Concomitant]
  6. TRAMADOL HYDROCHLORIDE [Concomitant]
  7. PROLIA [Suspect]
     Indication: OSTEOPOROSIS POSTMENOPAUSAL
     Dosage: UNK
     Dates: start: 20110316
  8. ASPIRIN [Concomitant]
     Dosage: UNK
  9. CLONAZEPAM [Concomitant]
  10. CYCLOBENZAPRINE [Concomitant]
  11. CITALOPRAM [Concomitant]
  12. CALCIUM WITH VITAMIN D             /00944201/ [Concomitant]
  13. MULTIVITAMIN                       /00097801/ [Concomitant]

REACTIONS (1)
  - ALOPECIA [None]
